FAERS Safety Report 7456674-4 (Version None)
Quarter: 2011Q2

REPORT INFORMATION
  Report Type: 
  Country: None (occurrence: None)
  Receive Date: 20110503
  Receipt Date: 20110426
  Transmission Date: 20111010
  Serious: Yes (Hospitalization)
  Sender: FDA-Public Use
  Company Number: US-ACTELION-A-US2011-48075

PATIENT

DRUGS (5)
  1. TADALAFIL [Concomitant]
  2. COUMADIN [Concomitant]
  3. VELETRI [Suspect]
     Indication: PULMONARY ARTERIAL HYPERTENSION
     Dosage: 64.5 NG/KG, PER MIN
     Route: 042
     Dates: start: 20110301
  4. AMBRISENTAN [Concomitant]
  5. TRACLEER [Concomitant]
     Indication: PULMONARY ARTERIAL HYPERTENSION

REACTIONS (8)
  - RECTAL HAEMORRHAGE [None]
  - PAIN IN JAW [None]
  - HEADACHE [None]
  - FATIGUE [None]
  - PLATELET COUNT DECREASED [None]
  - DIARRHOEA [None]
  - HAEMOGLOBIN DECREASED [None]
  - FLUSHING [None]
